FAERS Safety Report 9076690 (Version 1)
Quarter: 2013Q1

REPORT INFORMATION
  Report Type: Report from Study
  Country: US (occurrence: US)
  Receive Date: 20130129
  Receipt Date: 20130129
  Transmission Date: 20140127
  Serious: Yes (Other)
  Sender: FDA-Public Use
  Company Number: US-ABBOTT-12P-163-0949872-00

PATIENT
  Age: 81 None
  Sex: Male
  Weight: 119.86 kg

DRUGS (8)
  1. HUMIRA 40 MG/0.8 ML PEN [Suspect]
     Indication: PSORIASIS
     Dates: start: 200703
  2. CORRECTOL [Concomitant]
     Indication: CONSTIPATION
  3. CILOSTAZOL [Concomitant]
     Indication: THROMBOSIS PROPHYLAXIS
  4. CARVEDILOL [Concomitant]
     Indication: HYPERTENSION
  5. ISOSORBIDE [Concomitant]
     Indication: HYPERTENSION
  6. LISINOPRIL [Concomitant]
     Indication: HYPERTENSION
  7. ASPIRIN [Concomitant]
     Indication: CARDIAC DISORDER
  8. ASPIRIN [Concomitant]
     Indication: PROPHYLAXIS

REACTIONS (1)
  - Cellulitis [Not Recovered/Not Resolved]
